FAERS Safety Report 7102038-2 (Version None)
Quarter: 2010Q4

REPORT INFORMATION
  Report Type: 
  Country: None (occurrence: None)
  Receive Date: 20101115
  Receipt Date: 20101103
  Transmission Date: 20110411
  Serious: Yes (Other)
  Sender: FDA-Public Use
  Company Number: US-JNJCH-2010025397

PATIENT
  Age: 56 Year
  Sex: Male
  Weight: 104.3 kg

DRUGS (2)
  1. BENADRYL [Suspect]
     Indication: THERMAL BURN
     Dosage: TEXT:ONE SPRAY ONCE
     Route: 061
     Dates: start: 20101103, end: 20101103
  2. LISINOPRIL [Concomitant]
     Indication: HYPERTENSION
     Dosage: TEXT:20MG ONCE DAILY
     Route: 065

REACTIONS (3)
  - APPLICATION SITE VESICLES [None]
  - RASH PAPULAR [None]
  - SWELLING [None]
